FAERS Safety Report 9804301 (Version 1)
Quarter: 2014Q1

REPORT INFORMATION
  Report Type: Spontaneous
  Country: US (occurrence: US)
  Receive Date: 20140108
  Receipt Date: 20140108
  Transmission Date: 20141002
  Serious: Yes (Death)
  Sender: FDA-Public Use
  Company Number: US-BAYER-2014-003097

PATIENT
  Age: 50 Year
  Sex: Female

DRUGS (8)
  1. DIPHENHYDRAMINE HYDROCHLORIDE [Suspect]
     Route: 048
  2. MORPHINE [Suspect]
     Route: 048
  3. TRAMADOL [Suspect]
     Route: 048
  4. CYCLOBENZAPRINE [Suspect]
     Route: 048
  5. CARBAMAZEPINE [Suspect]
     Route: 048
  6. METOCLOPRAMIDE [Suspect]
     Route: 048
  7. DIAZEPAM [Suspect]
     Route: 048
  8. QUETIAPINE [Suspect]
     Route: 048

REACTIONS (1)
  - Drug abuse [Fatal]
